FAERS Safety Report 12472787 (Version 2)
Quarter: 2016Q3

REPORT INFORMATION
  Report Type: Spontaneous
  Country: US (occurrence: US)
  Receive Date: 20160616
  Receipt Date: 20160704
  Transmission Date: 20161109
  Serious: Yes (Hospitalization, Other)
  Sender: FDA-Public Use
  Company Number: US-BRISTOL-MYERS SQUIBB COMPANY-BMS-2016-046803

PATIENT
  Sex: Female
  Weight: 63.5 kg

DRUGS (1)
  1. ORENCIA [Suspect]
     Active Substance: ABATACEPT
     Indication: PRODUCT USED FOR UNKNOWN INDICATION
     Dosage: UNK
     Route: 058

REACTIONS (7)
  - Pneumonia [Unknown]
  - Oral fungal infection [Unknown]
  - Eyelid irritation [Unknown]
  - Injection site pain [Unknown]
  - Erythema of eyelid [Unknown]
  - Balance disorder [Unknown]
  - Eyelids pruritus [Unknown]
